FAERS Safety Report 5522981-5 (Version None)
Quarter: 2007Q4

REPORT INFORMATION
  Report Type: 
  Country: None (occurrence: None)
  Receive Date: 20071121
  Receipt Date: 20071113
  Transmission Date: 20080405
  Serious: Yes (Other)
  Sender: FDA-Public Use
  Company Number: PHBS2007JP19106

PATIENT
  Age: 62 Year
  Sex: Female

DRUGS (3)
  1. TEGRETOL [Suspect]
     Indication: FACIAL SPASM
     Dosage: 200 MG/DAY
     Route: 048
     Dates: start: 20070807, end: 20070828
  2. TEGRETOL [Suspect]
     Dosage: 200 MG/DAY
     Route: 048
     Dates: start: 20070920, end: 20070920
  3. PLETAL [Concomitant]
     Route: 048
     Dates: start: 20070807, end: 20070920

REACTIONS (9)
  - ALANINE AMINOTRANSFERASE INCREASED [None]
  - BLOOD LACTATE DEHYDROGENASE INCREASED [None]
  - DRUG RASH WITH EOSINOPHILIA AND SYSTEMIC SYMPTOMS [None]
  - GAMMA-GLUTAMYLTRANSFERASE INCREASED [None]
  - GENERALISED ERYTHEMA [None]
  - LYMPHADENOPATHY [None]
  - PAIN [None]
  - PYELONEPHRITIS [None]
  - PYREXIA [None]
